FAERS Safety Report 9415543 (Version 1)
Quarter: 2013Q3

REPORT INFORMATION
  Report Type: Spontaneous
  Country: US (occurrence: US)
  Receive Date: 20130723
  Receipt Date: 20130723
  Transmission Date: 20140515
  Serious: Yes (Other)
  Sender: FDA-Public Use
  Company Number: US-SANOFI-AVENTIS-2013SA072933

PATIENT
  Age: 70 Year
  Sex: Female

DRUGS (2)
  1. LANTUS SOLOSTAR [Suspect]
     Indication: TYPE 2 DIABETES MELLITUS
     Dosage: PRODUCT START DATE: 2 YEARS AGO. DOSE:36 UNIT(S)
     Route: 058
  2. SOLOSTAR [Suspect]
     Indication: TYPE 2 DIABETES MELLITUS

REACTIONS (9)
  - Urinary tract infection [Unknown]
  - Lung disorder [Unknown]
  - Obesity [Unknown]
  - Fatigue [Unknown]
  - Stress [Unknown]
  - Muscular weakness [Unknown]
  - Dysgeusia [Unknown]
  - Blood glucose increased [Unknown]
  - Injection site pain [Unknown]
